FAERS Safety Report 20057960 (Version 2)
Quarter: 2021Q4

REPORT INFORMATION
  Report Type: Report from Study
  Country: IT (occurrence: IT)
  Receive Date: 20211111
  Receipt Date: 20211115
  Transmission Date: 20220303
  Serious: Yes (Hospitalization, Other)
  Sender: FDA-Public Use
  Company Number: None

PATIENT
  Age: 14 Year
  Sex: Female

DRUGS (3)
  1. QUETIAPINE [Suspect]
     Active Substance: QUETIAPINE
     Indication: Product used for unknown indication
     Dosage: 0.9 GRAM, QD
     Route: 048
     Dates: start: 20210729, end: 20210729
  2. FLUOXETINE [Concomitant]
     Active Substance: FLUOXETINE HYDROCHLORIDE
     Indication: Affective disorder
     Dosage: 20 MILLIGRAM
     Route: 048
  3. LITHIUM SULFATE [Concomitant]
     Active Substance: LITHIUM SULFATE
     Indication: Affective disorder
     Dosage: 1 DOSAGE FORM
     Route: 048

REACTIONS (4)
  - Intentional self-injury [Not Recovered/Not Resolved]
  - Aortic bruit [Not Recovered/Not Resolved]
  - Cardiac murmur [Not Recovered/Not Resolved]
  - Drug abuse [Unknown]

NARRATIVE: CASE EVENT DATE: 20210729
